FAERS Safety Report 19805912 (Version 7)
Quarter: 2025Q2

REPORT INFORMATION
  Report Type: Report from Study
  Country: PL (occurrence: PL)
  Receive Date: 20210909
  Receipt Date: 20250422
  Transmission Date: 20250717
  Serious: Yes (Other)
  Sender: AUROBINDO
  Company Number: PL-PFIZER INC-202101114489

PATIENT
  Age: 73 Year
  Sex: Female

DRUGS (18)
  1. GABAPENTIN [Interacting]
     Active Substance: GABAPENTIN
     Indication: Neuralgia
     Dosage: 1800 MILLIGRAM, ONCE A DAY (600 MG, 3X/DAY)
     Route: 065
  2. GABAPENTIN [Interacting]
     Active Substance: GABAPENTIN
     Dosage: 600 MILLIGRAM, ONCE A DAY
     Route: 065
  3. GABAPENTIN [Interacting]
     Active Substance: GABAPENTIN
     Dosage: 3 DOSAGE FORM, ONCE A DAY
     Route: 065
  4. PREGABALIN [Suspect]
     Active Substance: PREGABALIN
     Indication: Neuralgia
     Route: 065
  5. CITALOPRAM [Suspect]
     Active Substance: CITALOPRAM
     Indication: Neuralgia
     Dosage: 20 MILLIGRAM, ONCE A DAY (IN THE MORNING)
     Route: 065
  6. CITALOPRAM [Suspect]
     Active Substance: CITALOPRAM
     Dosage: 1 DOSAGE FORM, ONCE A DAY (AT THE MORNING)
     Route: 065
  7. DULOXETINE [Suspect]
     Active Substance: DULOXETINE
     Indication: Neuralgia
     Dosage: 60 MILLIGRAM, ONCE A DAY (IN THE MORNING)
     Route: 065
  8. HYDROXYZINE [Interacting]
     Active Substance: HYDROXYZINE HYDROCHLORIDE
     Indication: Neuralgia
     Dosage: 10 MILLIGRAM, ONCE A DAY
     Route: 065
  9. HYDROXYZINE [Interacting]
     Active Substance: HYDROXYZINE HYDROCHLORIDE
     Dosage: 1 DOSAGE FORM, ONCE A DAY (BEDTIME )
     Route: 065
  10. MORPHINE [Suspect]
     Active Substance: MORPHINE
     Indication: Neuralgia
     Dosage: 120 MILLIGRAM, ONCE A DAY (60 MG, 2X/DAY)
     Route: 065
  11. MORPHINE [Suspect]
     Active Substance: MORPHINE
     Dosage: 60 MILLIGRAM, ONCE A DAY(30 MG, BID )
     Route: 065
  12. TAPENTADOL [Suspect]
     Active Substance: TAPENTADOL
     Indication: Pain
     Route: 065
  13. TAPENTADOL [Suspect]
     Active Substance: TAPENTADOL
     Indication: Neuralgia
  14. CAPSAICIN [Concomitant]
     Active Substance: CAPSAICIN
     Indication: Pain
     Route: 065
  15. TRAZODONE [Concomitant]
     Active Substance: TRAZODONE HYDROCHLORIDE
     Indication: Sleep disorder
     Route: 065
  16. TAPENTADOL [Concomitant]
     Active Substance: TAPENTADOL
     Indication: Pain
     Route: 065
  17. CITALOPRAM [Concomitant]
     Active Substance: CITALOPRAM
     Indication: Neuralgia
     Dosage: 20 MILLIGRAM, ONCE A DAY
     Route: 065
  18. DULOXETINE [Concomitant]
     Active Substance: DULOXETINE
     Indication: Neuralgia
     Dosage: 60 MILLIGRAM, ONCE A DAY
     Route: 065

REACTIONS (9)
  - Drug interaction [Recovered/Resolved]
  - Delirium [Recovered/Resolved]
  - Constipation [Recovered/Resolved]
  - Confusional state [Recovered/Resolved]
  - Drug ineffective [Recovered/Resolved]
  - Therapeutic product effect incomplete [Unknown]
  - Pain [Unknown]
  - Drug ineffective for unapproved indication [Unknown]
  - Product selection error [Unknown]
